FAERS Safety Report 14312026 (Version 2)
Quarter: 2018Q1

REPORT INFORMATION
  Report Type: Report from Study
  Country: FR (occurrence: FR)
  Receive Date: 20171221
  Receipt Date: 20180101
  Transmission Date: 20180509
  Serious: Yes (Other)
  Sender: FDA-Public Use
  Company Number: FR-ROCHE-1266932

PATIENT

DRUGS (1)
  1. BEVACIZUMAB. [Suspect]
     Active Substance: BEVACIZUMAB
     Indication: HEREDITARY HAEMORRHAGIC TELANGIECTASIA
     Dosage: 6 INFUSIONS
     Route: 042

REACTIONS (25)
  - Haemorrhage [Unknown]
  - Hypersensitivity [Unknown]
  - Herpes zoster [Unknown]
  - Hypertension [Unknown]
  - Thrombosis mesenteric vessel [Unknown]
  - Decubitus ulcer [Unknown]
  - Confusional state [Unknown]
  - Gastrooesophageal reflux disease [Unknown]
  - Lymphoma [Unknown]
  - Gout [Unknown]
  - Osteitis [Unknown]
  - Asthenia [Unknown]
  - Abdominal pain [Unknown]
  - Skin ulcer [Unknown]
  - Depression [Unknown]
  - Drug ineffective [Unknown]
  - Paraesthesia [Unknown]
  - Hypocalcaemia [Unknown]
  - Arthralgia [Unknown]
  - Neutropenia [Unknown]
  - Impaired healing [Unknown]
  - Polyarthritis [Unknown]
  - Eye infection [Unknown]
  - Pain [Unknown]
  - Muscular weakness [Unknown]
